FAERS Safety Report 15519081 (Version 2)
Quarter: 2018Q4

REPORT INFORMATION
  Report Type: Spontaneous
  Country: US (occurrence: US)
  Receive Date: 20181017
  Receipt Date: 20181019
  Transmission Date: 20190205
  Serious: No
  Sender: FDA-Public Use
  Company Number: US-SA-2018SA284918

PATIENT
  Sex: Male

DRUGS (1)
  1. ACT ANTICAVITY FLUORIDE MINT [Suspect]
     Active Substance: SODIUM FLUORIDE
     Dosage: UNK, UNK
     Route: 065

REACTIONS (4)
  - Dry mouth [Unknown]
  - Condition aggravated [Unknown]
  - Oral discomfort [Unknown]
  - Oral candidiasis [Unknown]
